FAERS Safety Report 18134701 (Version 1)
Quarter: 2020Q3

REPORT INFORMATION
  Report Type: Spontaneous
  Country: US (occurrence: US)
  Receive Date: 20200811
  Receipt Date: 20200811
  Transmission Date: 20201103
  Serious: Yes (Other)
  Sender: FDA-Public Use
  Company Number: US-CELLTRION-2020-US-015903

PATIENT
  Age: 57 Year
  Sex: Male

DRUGS (1)
  1. ROPINIROLE (NON?SPECIFIC) [Suspect]
     Active Substance: ROPINIROLE HYDROCHLORIDE
     Indication: RESTLESS ARM SYNDROME
     Dosage: 0.25 MG DAILY
     Route: 048

REACTIONS (2)
  - Liver function test increased [Unknown]
  - Hepatic steatosis [Unknown]
